FAERS Safety Report 12936460 (Version 2)
Quarter: 2016Q4

REPORT INFORMATION
  Report Type: Spontaneous
  Country: US (occurrence: US)
  Receive Date: 20161114
  Receipt Date: 20161122
  Transmission Date: 20170207
  Serious: Yes (Other)
  Sender: FDA-Public Use
  Company Number: US-BAYER-2016-211733

PATIENT
  Age: 33 Year
  Sex: Female

DRUGS (1)
  1. MIRENA [Suspect]
     Active Substance: LEVONORGESTREL
     Indication: CONTRACEPTION
     Dosage: 20 MCG/24HR, CONT
     Route: 015
     Dates: start: 20130401

REACTIONS (10)
  - Weight decreased [None]
  - Gastrointestinal sounds abnormal [None]
  - Menstruation irregular [None]
  - Abdominal pain lower [None]
  - Uterine perforation [None]
  - Amenorrhoea [None]
  - Procedural pain [None]
  - Gastric dilatation [Not Recovered/Not Resolved]
  - Coeliac disease [None]
  - Genital haemorrhage [Not Recovered/Not Resolved]

NARRATIVE: CASE EVENT DATE: 201610
